FAERS Safety Report 13795237 (Version 5)
Quarter: 2018Q3

REPORT INFORMATION
  Report Type: Not Available
  Country: US (occurrence: US)
  Receive Date: 20170726
  Receipt Date: 20180828
  Transmission Date: 20181010
  Serious: No
  Sender: FDA-Public Use
  Company Number: US-NEUROCRINE BIOSCIENCES INC.-2017NBI00262

PATIENT
  Age: 32 Year
  Sex: Female
  Weight: 69.46 kg

DRUGS (2)
  1. INGREZZA [Suspect]
     Active Substance: VALBENAZINE
     Route: 048
  2. INGREZZA [Suspect]
     Active Substance: VALBENAZINE
     Indication: TARDIVE DYSKINESIA
     Route: 048
     Dates: start: 20170524

REACTIONS (3)
  - Fatigue [Not Recovered/Not Resolved]
  - Somnolence [Unknown]
  - Restlessness [Unknown]

NARRATIVE: CASE EVENT DATE: 20170602
